FAERS Safety Report 25963074 (Version 1)
Quarter: 2025Q4

REPORT INFORMATION
  Report Type: Report from Study
  Country: US (occurrence: US)
  Receive Date: 20251027
  Receipt Date: 20251027
  Transmission Date: 20260118
  Serious: Yes (Other)
  Sender: ALEXION PHARMACEUTICALS
  Company Number: 202506USA027977US

PATIENT
  Sex: Female

DRUGS (1)
  1. SAPHNELO [Suspect]
     Active Substance: ANIFROLUMAB-FNIA
     Dosage: 300 MILLIGRAM, Q4W
     Dates: start: 20250418

REACTIONS (5)
  - Myasthenia gravis [Unknown]
  - Pericarditis [Unknown]
  - Dizziness [Recovered/Resolved]
  - Myalgia [Recovered/Resolved]
  - Product use issue [Unknown]
